FAERS Safety Report 10207663 (Version 1)
Quarter: 2014Q2

REPORT INFORMATION
  Report Type: Spontaneous
  Country: US (occurrence: US)
  Receive Date: 20140530
  Receipt Date: 20140530
  Transmission Date: 20141212
  Serious: No
  Sender: FDA-Public Use
  Company Number: US-GLAXOSMITHKLINE-A1053761A

PATIENT
  Sex: Female

DRUGS (5)
  1. VENTOLIN [Suspect]
     Indication: ASTHMA
     Route: 055
  2. SYMBICORT [Concomitant]
  3. ENALAPRIL [Concomitant]
  4. ZYRTEC [Concomitant]
  5. AMLODIPINE [Concomitant]

REACTIONS (5)
  - Chest discomfort [Unknown]
  - Bronchitis [Unknown]
  - Dyspnoea [Unknown]
  - Wheezing [Unknown]
  - Drug ineffective [Unknown]
